FAERS Safety Report 10526863 (Version 4)
Quarter: 2017Q4

REPORT INFORMATION
  Report Type: Report from Study
  Country: DE (occurrence: DE)
  Receive Date: 20141020
  Receipt Date: 20171020
  Transmission Date: 20180320
  Serious: Yes (Hospitalization)
  Sender: FDA-Public Use
  Company Number: DE-ROCHE-1378086

PATIENT
  Age: 77 Year
  Sex: Female
  Weight: 65 kg

DRUGS (4)
  1. BEVACIZUMAB. [Suspect]
     Active Substance: BEVACIZUMAB
     Indication: BREAST CANCER METASTATIC
     Dosage: CYCLE 5
     Route: 042
     Dates: start: 20121219, end: 20121219
  2. XELODA [Suspect]
     Active Substance: CAPECITABINE
     Indication: BREAST CANCER
     Dosage: DOSE= 3000 MG FROM DAY 1 TO DAY 14
     Route: 048
     Dates: start: 20121219, end: 20140323
  3. BEVACIZUMAB. [Suspect]
     Active Substance: BEVACIZUMAB
     Dosage: CYCLE 5
     Route: 042
     Dates: start: 20140321, end: 20140321
  4. XELODA [Suspect]
     Active Substance: CAPECITABINE
     Route: 048
     Dates: start: 20131219, end: 20140321

REACTIONS (2)
  - Brain stem ischaemia [Recovered/Resolved]
  - Mobility decreased [Recovered/Resolved]

NARRATIVE: CASE EVENT DATE: 20140323
